FAERS Safety Report 23952534 (Version 1)
Quarter: 2024Q2

REPORT INFORMATION
  Report Type: Spontaneous
  Country: US (occurrence: US)
  Receive Date: 20240607
  Receipt Date: 20240607
  Transmission Date: 20240716
  Serious: No
  Sender: FDA-Public Use
  Company Number: US-UPSHER-SMITH LABORATORIES, LLC-2023USL00853

PATIENT
  Sex: Male
  Weight: 113.38 kg

DRUGS (16)
  1. AMIODARONE HYDROCHLORIDE [Suspect]
     Active Substance: AMIODARONE HYDROCHLORIDE
     Indication: Cardiac disorder
     Dosage: 100 MG, 1X/DAY, EVERY MORNING
     Dates: start: 2021, end: 202308
  2. AMIODARONE HYDROCHLORIDE [Suspect]
     Active Substance: AMIODARONE HYDROCHLORIDE
     Dosage: 100 MG, 2X/DAY
     Dates: start: 202308, end: 2023
  3. PACERONE [Suspect]
     Active Substance: AMIODARONE HYDROCHLORIDE
     Indication: Cardiac disorder
     Dosage: 100 MG, 2X/DAY
     Dates: start: 2023
  4. VITAMINS NOS [Concomitant]
     Active Substance: VITAMINS
  5. TRULICITY [Concomitant]
     Active Substance: DULAGLUTIDE
  6. UNSPECIFIED HEART PILL [Concomitant]
  7. METFORMIN [Concomitant]
     Active Substance: METFORMIN HYDROCHLORIDE
     Dosage: 1000 MG, 2X/DAY
  8. ATORVASTATIN [Concomitant]
     Active Substance: ATORVASTATIN
  9. EPLERENONE [Concomitant]
     Active Substance: EPLERENONE
  10. FUROSEMIDE [Concomitant]
     Active Substance: FUROSEMIDE
  11. ISOSORBIDE [Concomitant]
     Active Substance: ISOSORBIDE
  12. XARELTO [Concomitant]
     Active Substance: RIVAROXABAN
  13. JARDIANCE [Concomitant]
     Active Substance: EMPAGLIFLOZIN
  14. METOPROLOL SUCCINATE [Concomitant]
     Active Substance: METOPROLOL SUCCINATE
  15. HUMALOG [Concomitant]
     Active Substance: INSULIN LISPRO
  16. ALBUTEROL SULFATE [Concomitant]
     Active Substance: ALBUTEROL SULFATE

REACTIONS (4)
  - Hunger [Not Recovered/Not Resolved]
  - Weight increased [Recovering/Resolving]
  - Hyperphagia [Not Recovered/Not Resolved]
  - Arrhythmia [Recovered/Resolved]

NARRATIVE: CASE EVENT DATE: 20230101
